FAERS Safety Report 11863302 (Version 1)
Quarter: 2015Q4

REPORT INFORMATION
  Report Type: Spontaneous
  Country: US (occurrence: US)
  Receive Date: 20151223
  Receipt Date: 20151223
  Transmission Date: 20160305
  Serious: Yes (Death, Disabling)
  Sender: FDA-Public Use
  Company Number: PHEH2015US026758

PATIENT
  Sex: Female

DRUGS (1)
  1. AFINITOR [Suspect]
     Active Substance: EVEROLIMUS
     Indication: BREAST CANCER
     Dosage: 10 MG, QD
     Route: 048

REACTIONS (4)
  - Skin disorder [Unknown]
  - Breast cancer [Fatal]
  - Mucosal inflammation [Unknown]
  - Diarrhoea [Recovered/Resolved]
